FAERS Safety Report 23121650 (Version 1)
Quarter: 2023Q4

REPORT INFORMATION
  Report Type: Report from Study
  Country: BR (occurrence: BR)
  Receive Date: 20231029
  Receipt Date: 20231029
  Transmission Date: 20240110
  Serious: Yes (Death, Hospitalization, Other)
  Sender: FDA-Public Use
  Company Number: BR-002147023-NVSC2023BR213608

PATIENT
  Age: 66 Year
  Sex: Female

DRUGS (2)
  1. KISQALI [Suspect]
     Active Substance: RIBOCICLIB
     Indication: Breast cancer female
     Dosage: UNK
     Route: 065
     Dates: start: 202304
  2. KISQALI [Suspect]
     Active Substance: RIBOCICLIB
     Dosage: UNK
     Route: 065

REACTIONS (15)
  - Multiple organ dysfunction syndrome [Fatal]
  - Bacterial infection [Fatal]
  - Blood test abnormal [Unknown]
  - Rash macular [Unknown]
  - Metastasis [Unknown]
  - Metastases to liver [Unknown]
  - Hepatic mass [Unknown]
  - Eating disorder [Unknown]
  - Dysphagia [Unknown]
  - Decreased immune responsiveness [Unknown]
  - Dysstasia [Unknown]
  - Peripheral swelling [Unknown]
  - Vomiting [Unknown]
  - Asthenia [Unknown]
  - Erythema [Unknown]

NARRATIVE: CASE EVENT DATE: 20230901
